FAERS Safety Report 19378010 (Version 1)
Quarter: 2021Q2

REPORT INFORMATION
  Report Type: Spontaneous
  Country: CH (occurrence: CH)
  Receive Date: 20210604
  Receipt Date: 20210604
  Transmission Date: 20210717
  Serious: Yes (Other)
  Sender: FDA-Public Use
  Company Number: CH-SUNOVION-2021SUN002083

PATIENT
  Sex: Male

DRUGS (3)
  1. LATUDA [Suspect]
     Active Substance: LURASIDONE HYDROCHLORIDE
     Dosage: 20 MG, QD IN THE MORNING
     Route: 048
     Dates: start: 202101
  2. LATUDA [Suspect]
     Active Substance: LURASIDONE HYDROCHLORIDE
     Dosage: 20 MG, BID
     Route: 048
  3. LATUDA [Suspect]
     Active Substance: LURASIDONE HYDROCHLORIDE
     Dosage: 40 MG, BID
     Route: 048

REACTIONS (5)
  - Off label use [Unknown]
  - Psychotic disorder [Unknown]
  - Fatigue [Recovered/Resolved]
  - Dementia [Unknown]
  - Hallucination [Unknown]
